FAERS Safety Report 8986430 (Version 1)
Quarter: 2012Q4

REPORT INFORMATION
  Report Type: 
  Country: ES (occurrence: ES)
  Receive Date: 20121227
  Receipt Date: 20121227
  Transmission Date: 20130627
  Serious: Yes (Disabling, Other)
  Sender: FDA-Public Use
  Company Number: ES-TEVA-376721ISR

PATIENT
  Age: 47 Year
  Sex: Female

DRUGS (15)
  1. METHOTREXATE [Suspect]
     Indication: PSORIATIC ARTHROPATHY
     Dosage: 1.0714 Milligram Daily; 7.5 mg/w; reduced to 5 mg/w
     Route: 065
     Dates: end: 201009
  2. METHOTREXATE [Suspect]
     Indication: PSORIATIC ARTHROPATHY
     Dosage: 5 Milligram Daily; 5 mg/w
     Route: 065
     Dates: end: 201009
  3. ADALIMUMAB [Suspect]
     Indication: PSORIATIC ARTHROPATHY
     Dosage: 80mg; then 40mg after 1w
     Route: 065
     Dates: start: 201005
  4. ADALIMUMAB [Suspect]
     Indication: PSORIATIC ARTHROPATHY
     Dosage: 40mg; then every 2w
     Route: 065
     Dates: start: 201005
  5. ADALIMUMAB [Suspect]
     Indication: PSORIATIC ARTHROPATHY
     Dosage: every 2w
     Route: 065
     Dates: start: 201005
  6. CICLOSPORIN [Suspect]
     Indication: PUSTULAR PSORIASIS
     Dosage: 300 Milligram Daily; 300 mg/d
     Route: 065
  7. CICLOSPORIN [Suspect]
     Indication: PSORIASIS
  8. METFORMIN [Concomitant]
     Indication: DIABETES MELLITUS
     Route: 065
  9. ISONIAZID [Concomitant]
     Indication: TUBERCULIN TEST POSITIVE
     Route: 065
     Dates: start: 201002
  10. METHOXSALEN [Concomitant]
     Indication: PUSTULAR PSORIASIS
     Dosage: 40mg
     Route: 065
     Dates: end: 201012
  11. METHOXSALEN [Concomitant]
     Indication: PSORIASIS
  12. CALCIPOTRIOL, BETAMETHASONE DIPROPIONATE [Concomitant]
     Indication: PUSTULAR PSORIASIS
     Route: 065
     Dates: end: 201012
  13. CALCIPOTRIOL, BETAMETHASONE DIPROPIONATE [Concomitant]
     Indication: PSORIASIS
  14. ETANERCEPT [Concomitant]
     Indication: PUSTULAR PSORIASIS
     Route: 065
     Dates: start: 201011, end: 201012
  15. ETANERCEPT [Concomitant]
     Indication: PSORIASIS

REACTIONS (5)
  - Pustular psoriasis [Recovered/Resolved]
  - Psoriasis [Recovered/Resolved]
  - Paradoxical drug reaction [Recovered/Resolved]
  - Gastrointestinal disorder [Unknown]
  - Folliculitis [Recovered/Resolved]
